FAERS Safety Report 9806031 (Version 1)
Quarter: 2014Q1

REPORT INFORMATION
  Report Type: Spontaneous
  Country: US (occurrence: None)
  Receive Date: 20140108
  Receipt Date: 20140108
  Transmission Date: 20141002
  Serious: Yes (Other)
  Sender: FDA-Public Use
  Company Number: None

PATIENT
  Age: 59 Year
  Sex: Female
  Weight: 64.9 kg

DRUGS (10)
  1. CLOZAPINE [Suspect]
     Dosage: 1 TABLET QHS/BEDTIME
     Route: 048
     Dates: start: 20130906, end: 20140107
  2. GABAPENTIN [Concomitant]
  3. DIVALPROEX [Concomitant]
  4. LEVETIRACETAM [Concomitant]
  5. BENZTROPINE [Concomitant]
  6. AMLODIPINE [Concomitant]
  7. OMEPRAZOLE [Concomitant]
  8. IPRATROPIUM [Concomitant]
  9. SENNA [Concomitant]
  10. DOCUSATE LIQUID [Concomitant]

REACTIONS (1)
  - Neutrophil count decreased [None]
